FAERS Safety Report 4384560-5 (Version None)
Quarter: 2004Q2

REPORT INFORMATION
  Report Type: 
  Country: None (occurrence: None)
  Receive Date: 20040607
  Receipt Date: 20040203
  Transmission Date: 20050107
  Serious: Yes (Other)
  Sender: FDA-Public Use
  Company Number: 358180

PATIENT

DRUGS (1)
  1. ROACUTANE (ISOTRETINOIN) 20 MG [Suspect]
     Indication: ACNE
     Dosage: 40 MG DAILY ORAL
     Route: 048
     Dates: start: 20030315, end: 20031115

REACTIONS (2)
  - NO ADVERSE EFFECT [None]
  - PREGNANCY [None]
